FAERS Safety Report 19736227 (Version 1)
Quarter: 2021Q3

REPORT INFORMATION
  Report Type: Spontaneous
  Country: IN (occurrence: IN)
  Receive Date: 20210824
  Receipt Date: 20210824
  Transmission Date: 20211014
  Serious: Yes (Other)
  Sender: FDA-Public Use
  Company Number: IN-AMGEN-INDSP2021128405

PATIENT

DRUGS (3)
  1. PREDNISOLONE. [Concomitant]
     Active Substance: PREDNISOLONE
     Indication: TYPE 2 LEPRA REACTION
     Dosage: UNK (40MG ONCE DAILY AND TAPERED AT TWO WEEKLY INTERVALS OVER 12 WEEKS)
  2. APREMILAST [Suspect]
     Active Substance: APREMILAST
     Indication: OFF LABEL USE
     Dosage: 30 MILLIGRAM, BID
     Route: 065
  3. APREMILAST [Suspect]
     Active Substance: APREMILAST
     Indication: TYPE 2 LEPRA REACTION
     Dosage: UNK (ONE?WEEK INITIAL DOSE TITRATION)
     Route: 065

REACTIONS (11)
  - Epigastric discomfort [Unknown]
  - Vomiting [Unknown]
  - Off label use [Unknown]
  - Therapeutic response unexpected [Unknown]
  - Cushingoid [Unknown]
  - Type 2 lepra reaction [Unknown]
  - Urticaria [Unknown]
  - Weight decreased [Unknown]
  - Nausea [Unknown]
  - Headache [Unknown]
  - Osteoporosis [Unknown]
